FAERS Safety Report 7563611-0 (Version None)
Quarter: 2011Q2

REPORT INFORMATION
  Report Type: 
  Country: None (occurrence: None)
  Receive Date: 20110622
  Receipt Date: 20110615
  Transmission Date: 20111010
  Serious: Yes (Hospitalization, Other)
  Sender: FDA-Public Use
  Company Number: US-B.I. PHARMACEUTICALS,INC./RIDGEFIELD-2011-BP-15434BP

PATIENT
  Age: 80 Year
  Sex: Female

DRUGS (11)
  1. CALCIUM CARBONATE [Concomitant]
     Indication: SUPPLEMENTATION THERAPY
  2. LASIX [Concomitant]
     Indication: OEDEMA
  3. PRADAXA [Suspect]
     Indication: ATRIAL FIBRILLATION
     Dosage: 300 MG
     Route: 048
     Dates: start: 20110201
  4. ZETORETIC [Concomitant]
     Indication: HYPERTENSION
  5. ARICEPT [Concomitant]
     Indication: MEMORY IMPAIRMENT
  6. FOSAMAX [Concomitant]
     Indication: OSTEOPOROSIS
  7. MOBIC [Concomitant]
     Indication: ARTHRITIS
  8. VYTORIN [Concomitant]
     Indication: BLOOD CHOLESTEROL INCREASED
  9. POTASSIUM [Concomitant]
     Indication: SUPPLEMENTATION THERAPY
  10. TENORMIN [Concomitant]
     Indication: HYPERTENSION
  11. VESICARE [Concomitant]
     Indication: INCONTINENCE

REACTIONS (3)
  - INTERNATIONAL NORMALISED RATIO INCREASED [None]
  - HAEMOGLOBIN DECREASED [None]
  - HAEMORRHAGE [None]
